FAERS Safety Report 5723036-7 (Version None)
Quarter: 2008Q2

REPORT INFORMATION
  Report Type: 
  Country: None (occurrence: None)
  Receive Date: 20080430
  Receipt Date: 20080425
  Transmission Date: 20081010
  Serious: Yes (Other)
  Sender: FDA-Public Use
  Company Number: CH-WYE-G01462808

PATIENT
  Age: 63 Year
  Sex: Female

DRUGS (2)
  1. EFFEXOR [Suspect]
     Dosage: UNSPECIFIED
     Dates: end: 20080201
  2. NEXIUM [Suspect]
     Dosage: UNSPECIFIED
     Dates: end: 20080201

REACTIONS (1)
  - INTRAOCULAR PRESSURE INCREASED [None]
